FAERS Safety Report 9977626 (Version 1)
Quarter: 2014Q1

REPORT INFORMATION
  Report Type: Report from Study
  Country: US (occurrence: US)
  Receive Date: 20140306
  Receipt Date: 20140306
  Transmission Date: 20141002
  Serious: No
  Sender: FDA-Public Use
  Company Number: US-ABBVIE-13P-163-1162768-00

PATIENT
  Age: 34 Year
  Sex: Female

DRUGS (23)
  1. HUMIRA [Suspect]
     Indication: CROHN^S DISEASE
     Dates: start: 20131011, end: 20131011
  2. HUMIRA [Suspect]
  3. VESICARE [Concomitant]
     Indication: CYSTITIS INTERSTITIAL
  4. GABAPENTIN [Concomitant]
     Indication: FIBROMYALGIA
  5. PHENTERMINE [Concomitant]
     Indication: PRODUCT USED FOR UNKNOWN INDICATION
  6. OMEPRAZOLE [Concomitant]
     Indication: CROHN^S DISEASE
  7. PENTASA [Concomitant]
     Indication: CROHN^S DISEASE
  8. ELAVIL [Concomitant]
     Indication: CYSTITIS INTERSTITIAL
  9. MICROGESTIN [Concomitant]
     Indication: CONTRACEPTION
     Dosage: 1/20
  10. VITAMIN D [Concomitant]
     Indication: VITAMIN SUPPLEMENTATION
  11. VITAMIN D [Concomitant]
     Indication: CROHN^S DISEASE
  12. VITAMIN B12 [Concomitant]
     Indication: VITAMIN SUPPLEMENTATION
  13. VITAMIN B12 [Concomitant]
     Indication: CROHN^S DISEASE
  14. FOLIC ACID [Concomitant]
     Indication: VITAMIN SUPPLEMENTATION
  15. FOLIC ACID [Concomitant]
     Indication: CROHN^S DISEASE
  16. ZINC [Concomitant]
     Indication: VITAMIN SUPPLEMENTATION
  17. ZINC [Concomitant]
     Indication: CROHN^S DISEASE
  18. MAGNESIUM [Concomitant]
     Indication: VITAMIN SUPPLEMENTATION
     Dosage: DAILY
  19. MAGNESIUM [Concomitant]
     Indication: CROHN^S DISEASE
  20. IRON [Concomitant]
     Indication: VITAMIN SUPPLEMENTATION
     Dosage: DAILY
  21. IRON [Concomitant]
     Indication: CROHN^S DISEASE
  22. PROBIOTICS [Concomitant]
     Indication: VITAMIN SUPPLEMENTATION
  23. PROBIOTICS [Concomitant]
     Indication: CROHN^S DISEASE

REACTIONS (5)
  - Device malfunction [Recovered/Resolved]
  - Incorrect dose administered [Recovered/Resolved]
  - Injection site haemorrhage [Recovered/Resolved]
  - Injection site laceration [Recovered/Resolved]
  - Pyrexia [Recovered/Resolved]
